FAERS Safety Report 5003871-3 (Version None)
Quarter: 2006Q2

REPORT INFORMATION
  Report Type: 
  Country: None (occurrence: None)
  Receive Date: 20060515
  Receipt Date: 20060426
  Transmission Date: 20061013
  Serious: Yes (Hospitalization, Other)
  Sender: FDA-Public Use
  Company Number: DEU-2005-0001618

PATIENT
  Age: 76 Year
  Sex: Female
  Weight: 63 kg

DRUGS (10)
  1. PALLADONE [Suspect]
     Indication: PAIN
     Dosage: SEE IMAGE
     Route: 048
     Dates: start: 20041117
  2. KATADOLON(FLUPIRTINE MALEATE) [Suspect]
     Dosage: 1 UNIT, TID, ORAL
     Route: 048
     Dates: start: 20031001
  3. AMITRIPTYLINE HYDROCHLORIDE [Concomitant]
  4. BELOC-ZOC MITE (METOPROLOL SUCCINATE) [Concomitant]
  5. AMLODIPINE [Concomitant]
  6. PANTOPRAZOLE [Concomitant]
  7. NOVALGIN [Concomitant]
  8. PARACETAMOL [Concomitant]
  9. RISPERDAL [Concomitant]
  10. MOVICOL (MACROGOL, SODIUM CHLORIDE, POTASSIUM CHLORIDE, SODIUM BICARBO [Concomitant]

REACTIONS (3)
  - MENINGIOMA [None]
  - RESTLESSNESS [None]
  - SLEEP WALKING [None]
